FAERS Safety Report 22238773 (Version 1)
Quarter: 2023Q2

REPORT INFORMATION
  Report Type: Spontaneous
  Country: US (occurrence: US)
  Receive Date: 20230421
  Receipt Date: 20230421
  Transmission Date: 20230722
  Serious: No
  Sender: FDA-Public Use
  Company Number: US-ALMIRALL, LLC-2022AQU000143

PATIENT

DRUGS (1)
  1. DAPSONE [Suspect]
     Active Substance: DAPSONE
     Indication: Acne
     Dosage: UNK, AS DIRECTED
     Route: 061
     Dates: start: 202112, end: 202203

REACTIONS (8)
  - Skin burning sensation [Unknown]
  - Sensitive skin [Unknown]
  - Acne [Unknown]
  - Dermatitis [Recovered/Resolved]
  - Feeling hot [Unknown]
  - Erythema [Unknown]
  - Drug ineffective [Unknown]
  - Product quality issue [Unknown]
